FAERS Safety Report 14931302 (Version 2)
Quarter: 2018Q3

REPORT INFORMATION
  Report Type: Spontaneous
  Country: BR (occurrence: BR)
  Receive Date: 20180524
  Receipt Date: 20180712
  Transmission Date: 20181010
  Serious: Yes (Hospitalization)
  Sender: FDA-Public Use
  Company Number: BR-AMGEN-BRASP2016182215

PATIENT
  Age: 59 Year
  Sex: Female

DRUGS (2)
  1. ENBREL [Suspect]
     Active Substance: ETANERCEPT
     Indication: PRODUCT USED FOR UNKNOWN INDICATION
     Dosage: 50 MG, UNK
     Route: 065
     Dates: start: 20161214
  2. ENBREL [Suspect]
     Active Substance: ETANERCEPT
     Dosage: UNK, UNK
     Route: 065

REACTIONS (14)
  - Walking disability [Unknown]
  - Haematoma [Unknown]
  - Depression [Unknown]
  - Apathy [Unknown]
  - Influenza [Unknown]
  - Muscular weakness [Unknown]
  - Speech disorder [Unknown]
  - Emphysema [Unknown]
  - Asthenia [Unknown]
  - Pain in extremity [Unknown]
  - Cough [Unknown]
  - Fatigue [Unknown]
  - Arthralgia [Unknown]
  - Renal pain [Not Recovered/Not Resolved]

NARRATIVE: CASE EVENT DATE: 201612
